FAERS Safety Report 9177528 (Version 1)
Quarter: 2012Q4

REPORT INFORMATION
  Report Type: 
  Country: US (occurrence: US)
  Receive Date: 20120928
  Receipt Date: 20120928
  Transmission Date: 20130627
  Serious: Yes (Other)
  Sender: FDA-Public Use
  Company Number: US-RB-044540-12

PATIENT
  Age: 48 Year
  Sex: Female

DRUGS (2)
  1. CEPACOL [Suspect]
     Indication: OROPHARYNGEAL PAIN
     Dosage: 2 sprays into the mouth
     Route: 048
     Dates: start: 20120910
  2. CEPACOL [Suspect]
     Indication: OROPHARYNGEAL PAIN
     Dosage: 2 sprays into the mouth
     Route: 048

REACTIONS (3)
  - Pharyngeal oedema [Recovered/Resolved]
  - Dyspnoea [Recovered/Resolved]
  - Vomiting [Recovered/Resolved]
